FAERS Safety Report 5914450-5 (Version None)
Quarter: 2008Q4

REPORT INFORMATION
  Report Type: 
  Country: None (occurrence: None)
  Receive Date: 20081007
  Receipt Date: 20080924
  Transmission Date: 20090506
  Serious: No
  Sender: FDA-Public Use
  Company Number: DSU-2008-01539

PATIENT
  Age: 66 Year
  Sex: Female
  Weight: 86.1834 kg

DRUGS (9)
  1. WELCHOL [Suspect]
     Indication: DIABETES MELLITUS
     Dosage: 3750 MG, PER ORAL
     Route: 048
     Dates: start: 20080701, end: 20080901
  2. WELCHOL [Suspect]
     Indication: HYPERLIPIDAEMIA
     Dosage: 3750 MG, PER ORAL
     Route: 048
     Dates: start: 20080701, end: 20080901
  3. AVANDIA (ROSIGLITAZONE MELEATE) (TABLET) (ROSIGLITAZONE MALEATE) [Concomitant]
  4. SIMVASTATIN (SIMVASTATIN) (TABLET) (SIMVASTATIN) [Concomitant]
  5. FOLCAP (FOLIC ACID, PYRIDOXINE, CYANOCOBALAMIN) (FOLIC AICD, PYRIDOXIN [Concomitant]
  6. BENAZEPRIL (BENAZEPRIL) (TABLET) (BENAZEPRIL) [Concomitant]
  7. DIOVAN [Concomitant]
  8. CHLORCON (POTASSIUM CHLORIDE) (POTASSIUM CHORIDE) [Concomitant]
  9. METFORMIN (METFORMIN) (TABLET) (METFORMIN) [Concomitant]

REACTIONS (6)
  - DYSPHAGIA [None]
  - OROPHARYNGEAL PAIN [None]
  - REGURGITATION [None]
  - RETCHING [None]
  - TREATMENT NONCOMPLIANCE [None]
  - WRONG TECHNIQUE IN DRUG USAGE PROCESS [None]
